FAERS Safety Report 6360638-1 (Version None)
Quarter: 2009Q3

REPORT INFORMATION
  Report Type: 
  Country: None (occurrence: None)
  Receive Date: 20090915
  Receipt Date: 20090904
  Transmission Date: 20100115
  Serious: Yes (Death)
  Sender: FDA-Public Use
  Company Number: OPIR20090030

PATIENT
  Age: 40 Year
  Sex: Male

DRUGS (1)
  1. OXYMORPHONE [Suspect]
     Dates: end: 20081101

REACTIONS (1)
  - DRUG TOXICITY [None]
